FAERS Safety Report 6472275-9 (Version None)
Quarter: 2009Q4

REPORT INFORMATION
  Report Type: 
  Country: None (occurrence: None)
  Receive Date: 20091203
  Receipt Date: 20091118
  Transmission Date: 20100525
  Serious: Yes (Other)
  Sender: FDA-Public Use
  Company Number: BE-GENENTECH-295168

PATIENT
  Age: 30 Year
  Sex: Female

DRUGS (4)
  1. XOLAIR [Suspect]
     Indication: ASTHMA
     Dosage: 37.5 MG, UNK
     Dates: start: 20091001
  2. XOLAIR [Suspect]
     Dosage: 150 MG, UNK
     Route: 058
  3. XOLAIR [Suspect]
     Dosage: 150 MG, UNK
     Route: 058
     Dates: end: 20091101
  4. ANTIHISTAMINE (UNK INGREDIENTS) [Concomitant]
     Indication: DRUG USE FOR UNKNOWN INDICATION

REACTIONS (1)
  - HYPERSENSITIVITY [None]
